FAERS Safety Report 11051898 (Version 1)
Quarter: 2015Q2

REPORT INFORMATION
  Report Type: Report from Study
  Country: US (occurrence: US)
  Receive Date: 20150421
  Receipt Date: 20150421
  Transmission Date: 20150821
  Serious: Yes (Other)
  Sender: FDA-Public Use
  Company Number: US-BAYER-2014-186939

PATIENT
  Age: 73 Year
  Sex: Male

DRUGS (5)
  1. STIVARGA [Suspect]
     Active Substance: REGORAFENIB
     Indication: GASTROINTESTINAL STROMAL TUMOUR
     Dosage: 120 MG DAILY
     Route: 048
     Dates: start: 20141218, end: 20141230
  2. STIVARGA [Suspect]
     Active Substance: REGORAFENIB
     Indication: GASTROINTESTINAL STROMAL TUMOUR
     Dosage: 40 MG , 2 TABLETS ALTERNATING WITH 3 TABLETS DAILY
     Route: 048
     Dates: start: 20150128
  3. STIVARGA [Suspect]
     Active Substance: REGORAFENIB
     Indication: GASTROINTESTINAL STROMAL TUMOUR
     Dosage: 120 MG DAILY
     Route: 048
     Dates: start: 20141207, end: 20141213
  4. STIVARGA [Suspect]
     Active Substance: REGORAFENIB
     Indication: GASTROINTESTINAL STROMAL TUMOUR
     Dosage: 80 MG DAILY
     Route: 048
     Dates: start: 20141217
  5. LISINOPRIL. [Concomitant]
     Active Substance: LISINOPRIL
     Indication: HYPERTENSION
     Dosage: 20 MG

REACTIONS (17)
  - Feeling cold [Not Recovered/Not Resolved]
  - Cold sweat [Recovered/Resolved]
  - Diarrhoea [Recovered/Resolved]
  - Blood pressure increased [Not Recovered/Not Resolved]
  - Fatigue [Not Recovered/Not Resolved]
  - Dysphonia [Recovered/Resolved]
  - Dysphonia [Not Recovered/Not Resolved]
  - Pain [Not Recovered/Not Resolved]
  - Oral pain [Not Recovered/Not Resolved]
  - Incorrect dose administered [None]
  - Blood pressure systolic increased [Not Recovered/Not Resolved]
  - Gastrointestinal stromal tumour [None]
  - Headache [Not Recovered/Not Resolved]
  - Hyperkeratosis [None]
  - Pain in extremity [Not Recovered/Not Resolved]
  - Skin fissures [None]
  - Toxicity to various agents [None]

NARRATIVE: CASE EVENT DATE: 20141207
